FAERS Safety Report 4492622-7 (Version None)
Quarter: 2004Q4

REPORT INFORMATION
  Report Type: 
  Country: None (occurrence: None)
  Receive Date: 20041029
  Receipt Date: 20041020
  Transmission Date: 20050328
  Serious: Yes (Death)
  Sender: FDA-Public Use
  Company Number: 200411013BVD

PATIENT
  Age: 41 Year
  Sex: Female

DRUGS (1)
  1. ASPIRIN [Suspect]
     Indication: COMPLETED SUICIDE
     Dosage: ORAL
     Route: 048

REACTIONS (9)
  - BASE EXCESS DECREASED [None]
  - BLOOD PH DECREASED [None]
  - BLOOD PH INCREASED [None]
  - COMA [None]
  - COMPLETED SUICIDE [None]
  - CONFUSIONAL STATE [None]
  - HYPERKALAEMIA [None]
  - HYPERVENTILATION [None]
  - OVERDOSE [None]
